FAERS Safety Report 15119682 (Version 1)
Quarter: 2018Q3

REPORT INFORMATION
  Report Type: Spontaneous
  Country: JP (occurrence: JP)
  Receive Date: 20180709
  Receipt Date: 20180709
  Transmission Date: 20181010
  Serious: Yes (Hospitalization)
  Sender: FDA-Public Use
  Company Number: JP-STRIDES ARCOLAB LIMITED-2018SP005604

PATIENT

DRUGS (5)
  1. LAMOTRIGINE. [Suspect]
     Active Substance: LAMOTRIGINE
     Indication: PRODUCT USED FOR UNKNOWN INDICATION
     Dosage: UNK
     Route: 065
  2. ZOLPIDEM [Suspect]
     Active Substance: ZOLPIDEM\ZOLPIDEM TARTRATE
     Indication: PRODUCT USED FOR UNKNOWN INDICATION
     Dosage: UNK
     Route: 065
  3. LITHIUM CARBONATE. [Suspect]
     Active Substance: LITHIUM CARBONATE
     Indication: PRODUCT USED FOR UNKNOWN INDICATION
     Dosage: UNK
     Route: 065
  4. ARIPIPRAZOLE. [Suspect]
     Active Substance: ARIPIPRAZOLE
     Indication: DEPRESSION
     Dosage: UNK
     Route: 065
  5. ETIZOLAM [Suspect]
     Active Substance: ETIZOLAM
     Indication: PRODUCT USED FOR UNKNOWN INDICATION
     Dosage: UNK
     Route: 065

REACTIONS (39)
  - Blood creatine phosphokinase increased [Unknown]
  - Primitive reflex test [Not Recovered/Not Resolved]
  - Blood urea increased [Unknown]
  - Depressed mood [Recovered/Resolved]
  - Anaemia [Unknown]
  - Feeling guilty [Recovered/Resolved]
  - Inappropriate affect [Not Recovered/Not Resolved]
  - Hypoxia [Unknown]
  - Urinary incontinence [Unknown]
  - Chronic kidney disease [Unknown]
  - Perseveration [Not Recovered/Not Resolved]
  - Respiratory acidosis [Unknown]
  - Stereotypy [Not Recovered/Not Resolved]
  - Schizophrenia [Unknown]
  - Impulsive behaviour [Unknown]
  - Suicidal ideation [Recovered/Resolved]
  - Anxiety [Recovered/Resolved]
  - Boredom [Recovered/Resolved]
  - Overdose [Unknown]
  - Coma [Recovered/Resolved]
  - Hypotension [Unknown]
  - Renal impairment [Unknown]
  - Confusional state [Recovered/Resolved]
  - Respiratory depression [Unknown]
  - Leukoencephalopathy [Recovered/Resolved]
  - Tachycardia [Unknown]
  - Apathy [Not Recovered/Not Resolved]
  - Loss of consciousness [Recovered/Resolved]
  - Depression [Unknown]
  - Tachypnoea [Unknown]
  - Hypokalaemia [Unknown]
  - Locked-in syndrome [Recovered/Resolved]
  - Taciturnity [Recovered/Resolved]
  - Hepatic function abnormal [Unknown]
  - Frontotemporal dementia [Not Recovered/Not Resolved]
  - Leukocytosis [Unknown]
  - Irritability [Not Recovered/Not Resolved]
  - Disorientation [Recovered/Resolved]
  - Suicide attempt [Unknown]
